FAERS Safety Report 19158277 (Version 2)
Quarter: 2021Q2

REPORT INFORMATION
  Report Type: Report from Study
  Country: BR (occurrence: BR)
  Receive Date: 20210420
  Receipt Date: 20210428
  Transmission Date: 20210717
  Serious: Yes (Hospitalization)
  Sender: FDA-Public Use
  Company Number: BR-CELGENEUS-BRA-20210205736

PATIENT
  Age: 72 Year
  Sex: Male
  Weight: 70.5 kg

DRUGS (19)
  1. ABRAXANE [Suspect]
     Active Substance: PACLITAXEL
     Dosage: 100 MILLIGRAM/SQ. METER ON DAY 1, 8 AND 15
     Route: 042
     Dates: start: 20210303, end: 20210331
  2. CARBOPLATIN. [Suspect]
     Active Substance: CARBOPLATIN
     Indication: NON-SMALL CELL LUNG CANCER STAGE IV
     Dosage: TITRATED TO AN AREA UNDER THE CURVE (AUC) 6 MG/ML/MIN, ON DAY 1 Q3W
     Route: 042
     Dates: start: 20210112, end: 20210112
  3. PEMBROLIZUMAB (MK?3475) [Suspect]
     Active Substance: PEMBROLIZUMAB
     Indication: NON-SMALL CELL LUNG CANCER STAGE IV
     Dosage: 200 MILLIGRAM ON DAY 1
     Route: 042
     Dates: start: 20210112, end: 20210112
  4. FERROUS SULFATE. [Concomitant]
     Active Substance: FERROUS SULFATE
     Indication: ANAEMIA
     Route: 065
  5. CARBOPLATIN. [Suspect]
     Active Substance: CARBOPLATIN
     Dosage: TITRATED TO AN AREA UNDER THE CURVE (AUC) 6 MG/ML/MIN, ON DAY 1 Q3W
     Route: 042
     Dates: start: 20210311, end: 20210331
  6. CAPTOPRIL. [Concomitant]
     Active Substance: CAPTOPRIL
     Indication: HYPERTENSION
     Dosage: 25 MILLIGRAM
     Route: 048
     Dates: start: 199001
  7. PEMBROLIZUMAB (MK?3475) [Suspect]
     Active Substance: PEMBROLIZUMAB
     Dosage: 200 MILLIGRAM ON DAY 1
     Route: 042
     Dates: start: 20210311, end: 20210331
  8. ONDANSETRON [Concomitant]
     Active Substance: ONDANSETRON
     Indication: CHEMOTHERAPY SIDE EFFECT PROPHYLAXIS
     Dosage: 16 MILLIGRAM
     Route: 042
     Dates: start: 20210210
  9. PEMBROLIZUMAB (MK?3475) [Suspect]
     Active Substance: PEMBROLIZUMAB
     Dosage: 200 MILLIGRAM ON DAY 1
     Route: 042
     Dates: start: 20210203, end: 20210203
  10. CARBOPLATIN. [Suspect]
     Active Substance: CARBOPLATIN
     Dosage: TITRATED TO AN AREA UNDER THE CURVE (AUC) 6 MG/ML/MIN, ON DAY 1 Q3W
     Route: 042
     Dates: start: 20210203, end: 20210203
  11. AKYNZEO [Concomitant]
     Active Substance: NETUPITANT\PALONOSETRON HYDROCHLORIDE
     Indication: CHEMOTHERAPY SIDE EFFECT PROPHYLAXIS
     Dosage: 1 CUMULATIVE DOSE
     Route: 048
     Dates: start: 20210203, end: 20210203
  12. ABRAXANE [Suspect]
     Active Substance: PACLITAXEL
     Indication: NON-SMALL CELL LUNG CANCER STAGE IV
     Dosage: 100 MILLIGRAM/SQ. METER ON DAY 1, 8 AND 15
     Route: 042
     Dates: start: 20210112, end: 20210203
  13. ABRAXANE [Suspect]
     Active Substance: PACLITAXEL
     Dosage: 100 MILLIGRAM/SQ. METER ON DAY 1, 8 AND 15
     Route: 042
     Dates: start: 20210210, end: 20210210
  14. HYDROCHLOROTHIAZIDE. [Concomitant]
     Active Substance: HYDROCHLOROTHIAZIDE
     Indication: HYPERTENSION
     Dosage: 25 MILLIGRAM, QD
     Route: 048
     Dates: start: 199001
  15. TIOTROPIUM BROMIDE [Concomitant]
     Active Substance: TIOTROPIUM BROMIDE
     Indication: CHRONIC OBSTRUCTIVE PULMONARY DISEASE
     Dosage: 5 MICROGRAM
     Route: 055
     Dates: start: 202011
  16. DEXAMETHASONE. [Concomitant]
     Active Substance: DEXAMETHASONE
     Indication: CHEMOTHERAPY SIDE EFFECT PROPHYLAXIS
     Route: 042
     Dates: start: 20210203
  17. ABRAXANE [Suspect]
     Active Substance: PACLITAXEL
     Dosage: 100 MILLIGRAM/SQ. METER?INDUCTION CYCLE 4 DAY 8
     Route: 042
     Dates: start: 20210408
  18. BROMAZEPAM [Concomitant]
     Active Substance: BROMAZEPAM
     Indication: ANXIETY
     Dosage: 6 MILLIGRAM
     Route: 048
     Dates: start: 200001
  19. FORMOTEROL FUMARATE [Concomitant]
     Active Substance: FORMOTEROL FUMARATE
     Indication: CHRONIC OBSTRUCTIVE PULMONARY DISEASE
     Dosage: 24 MICROGRAM
     Route: 055
     Dates: start: 202011

REACTIONS (1)
  - Gastrointestinal haemorrhage [Recovered/Resolved]

NARRATIVE: CASE EVENT DATE: 20210215
